FAERS Safety Report 8670512 (Version 2)
Quarter: 2013Q3

REPORT INFORMATION
  Report Type: Spontaneous
  Country: US (occurrence: US)
  Receive Date: 20120718
  Receipt Date: 20130802
  Transmission Date: 20140515
  Serious: No
  Sender: FDA-Public Use
  Company Number: US-BRISTOL-MYERS SQUIBB COMPANY-15856875

PATIENT
  Sex: Female
  Weight: 54.87 kg

DRUGS (2)
  1. COUMADIN [Suspect]
     Dosage: INTERPD AND RESTARTED,DOSE DECREASED
  2. SAVELLA [Suspect]
     Indication: FIBROMYALGIA

REACTIONS (4)
  - Onychoclasis [Unknown]
  - Haemorrhage [Unknown]
  - International normalised ratio increased [Recovered/Resolved]
  - Weight fluctuation [Unknown]
